FAERS Safety Report 18899240 (Version 2)
Quarter: 2023Q2

REPORT INFORMATION
  Report Type: Spontaneous
  Country: RO (occurrence: None)
  Receive Date: 20210216
  Receipt Date: 20230605
  Transmission Date: 20230722
  Serious: Yes (Other)
  Sender: FDA-Public Use
  Company Number: 2021A049103

PATIENT
  Age: 64 Year
  Sex: Female

DRUGS (2)
  1. DURVALUMAB [Suspect]
     Active Substance: DURVALUMAB
     Indication: Non-small cell lung cancer stage III
     Route: 042
     Dates: start: 202009, end: 20221025
  2. DURVALUMAB [Suspect]
     Active Substance: DURVALUMAB
     Indication: Non-small cell lung cancer stage III
     Dosage: 5 WEEKS AFTER THE LAST ADMINISTRATION
     Route: 042

REACTIONS (3)
  - Enterobacter infection [Recovering/Resolving]
  - Staphylococcal infection [Recovering/Resolving]
  - COVID-19 [Recovered/Resolved]
